FAERS Safety Report 19554146 (Version 1)
Quarter: 2021Q3

REPORT INFORMATION
  Report Type: Spontaneous
  Country: DE (occurrence: DE)
  Receive Date: 20210715
  Receipt Date: 20210715
  Transmission Date: 20211014
  Serious: Yes (Hospitalization)
  Sender: FDA-Public Use
  Company Number: DE-MYLANLABS-2021M1042103

PATIENT
  Age: 29 Year
  Sex: Female

DRUGS (6)
  1. CLOZAPINE. [Concomitant]
     Active Substance: CLOZAPINE
     Dosage: 325 MILLIGRAM
     Route: 065
  2. CLOZAPINE. [Concomitant]
     Active Substance: CLOZAPINE
     Indication: SCHIZOPHRENIA
     Dosage: 300 MILLIGRAM
     Route: 065
  3. LITHIUM. [Concomitant]
     Active Substance: LITHIUM
     Indication: SCHIZOPHRENIA
     Dosage: UNK
     Route: 065
  4. L?THYROXINE                        /00068001/ [Concomitant]
     Active Substance: LEVOTHYROXINE
     Indication: HYPOTHYROIDISM
     Dosage: UNK
     Route: 065
  5. HALOPERIDOL. [Concomitant]
     Active Substance: HALOPERIDOL
     Indication: SCHIZOPHRENIA
     Dosage: UNK
     Route: 065
  6. PARACETAMOL [Suspect]
     Active Substance: ACETAMINOPHEN
     Indication: PRODUCT USED FOR UNKNOWN INDICATION
     Dosage: 80 DOSAGE FORM, EQUIVALENT TO ABOUT 40G, CORRESPONDING TO 451 MG/KG BODY WEIGHT
     Route: 065

REACTIONS (10)
  - Vomiting [Recovered/Resolved]
  - Toxicity to various agents [Recovered/Resolved]
  - Suicide attempt [Unknown]
  - Nausea [Recovered/Resolved]
  - Tachycardia [Recovered/Resolved]
  - Transaminases increased [Recovered/Resolved]
  - Procalcitonin increased [Recovered/Resolved]
  - Leukocytosis [Recovered/Resolved]
  - Intentional overdose [Recovered/Resolved]
  - Abdominal pain [Recovered/Resolved]
